FAERS Safety Report 7981187-0 (Version None)
Quarter: 2011Q4

REPORT INFORMATION
  Report Type: 
  Country: None (occurrence: None)
  Receive Date: 20111215
  Receipt Date: 20111014
  Transmission Date: 20120403
  Serious: No
  Sender: FDA-Public Use
  Company Number: US-BAYER-2011-089611

PATIENT
  Age: 19 Year
  Sex: Female

DRUGS (1)
  1. MIRENA [Suspect]
     Indication: CONTRACEPTION
     Dosage: 20 ?G/D, CONT
     Dates: start: 20110922, end: 20110922

REACTIONS (2)
  - PROCEDURAL PAIN [None]
  - INTRA-UTERINE CONTRACEPTIVE DEVICE INSERTION [None]
